FAERS Safety Report 6045023-4 (Version None)
Quarter: 2009Q1

REPORT INFORMATION
  Report Type: 
  Country: None (occurrence: None)
  Receive Date: 20090121
  Receipt Date: 20090115
  Transmission Date: 20090719
  Serious: Yes (Death)
  Sender: FDA-Public Use
  Company Number: US-BRISTOL-MYERS SQUIBB COMPANY-14472880

PATIENT
  Age: 55 Year
  Sex: Male

DRUGS (7)
  1. PRAVASTATIN SODIUM [Suspect]
     Route: 048
  2. ACETAMINOPHEN [Suspect]
     Route: 048
  3. MIRTAZAPINE [Suspect]
     Route: 048
  4. ACETAMINOPHEN AND HYDROCODONE BITARTRATE [Suspect]
     Route: 048
  5. RISPERIDONE [Suspect]
     Route: 048
  6. GABAPENTIN [Suspect]
     Route: 048
  7. VERAPAMIL [Suspect]
     Route: 048

REACTIONS (1)
  - COMPLETED SUICIDE [None]
